FAERS Safety Report 7019527-1 (Version None)
Quarter: 2010Q3

REPORT INFORMATION
  Report Type: 
  Country: None (occurrence: None)
  Receive Date: 20100923
  Receipt Date: 20100914
  Transmission Date: 20110219
  Serious: Yes (Hospitalization)
  Sender: FDA-Public Use
  Company Number: TRP_07252_2010

PATIENT
  Age: 14 Year
  Sex: Male

DRUGS (14)
  1. AMPHOTERICIN B [Suspect]
     Indication: PARACOCCIDIOIDES INFECTION
     Dosage: DF, DF
     Dates: start: 20060201, end: 20060101
  2. AMPHOTERICIN B [Suspect]
     Indication: PARACOCCIDIOIDES INFECTION
     Dosage: DF, DF
     Dates: start: 20070801, end: 20070101
  3. AMPHOTERICIN B [Suspect]
     Indication: PARACOCCIDIOIDES INFECTION
     Dosage: 4 MG/KG PER DAY FOR UNKNOWN
     Dates: start: 20070101
  4. COTRIMOXAZOL (COTRIMOXAZOL) (NOT SPECIFIED) [Suspect]
     Indication: INFECTION
     Dosage: 8 MG/KG TID
     Dates: start: 20060101, end: 20070101
  5. ITRACONAZOLE [Suspect]
     Indication: INFECTION
     Dosage: 200 MG QD, 300 MG QD, 300 MG QD
     Dates: start: 20070501, end: 20070101
  6. ITRACONAZOLE [Suspect]
     Indication: TREATMENT NONCOMPLIANCE
     Dosage: 200 MG QD, 300 MG QD, 300 MG QD
     Dates: start: 20070501, end: 20070101
  7. ITRACONAZOLE [Suspect]
     Indication: INFECTION
     Dosage: 200 MG QD, 300 MG QD, 300 MG QD
     Dates: start: 20070701, end: 20070701
  8. ITRACONAZOLE [Suspect]
     Indication: TREATMENT NONCOMPLIANCE
     Dosage: 200 MG QD, 300 MG QD, 300 MG QD
     Dates: start: 20070701, end: 20070701
  9. ITRACONAZOLE [Suspect]
     Indication: INFECTION
     Dosage: 200 MG QD, 300 MG QD, 300 MG QD
     Dates: start: 20070701
  10. ITRACONAZOLE [Suspect]
     Indication: TREATMENT NONCOMPLIANCE
     Dosage: 200 MG QD, 300 MG QD, 300 MG QD
     Dates: start: 20070701
  11. SULFADIAZINE [Suspect]
     Indication: INFECTION
     Dosage: 4 G QD, DF
     Dates: start: 20070701, end: 20070701
  12. SULFADIAZINE [Suspect]
     Indication: TREATMENT NONCOMPLIANCE
     Dosage: 4 G QD, DF
     Dates: start: 20070701, end: 20070701
  13. SULFADIAZINE [Suspect]
     Indication: INFECTION
     Dosage: 4 G QD, DF
     Dates: start: 20071201
  14. SULFADIAZINE [Suspect]
     Indication: TREATMENT NONCOMPLIANCE
     Dosage: 4 G QD, DF
     Dates: start: 20071201

REACTIONS (13)
  - DRUG HYPERSENSITIVITY [None]
  - EOSINOPHILIA [None]
  - GENERAL PHYSICAL HEALTH DETERIORATION [None]
  - GRANULOMA [None]
  - LYMPHADENOPATHY [None]
  - NEPHROPATHY TOXIC [None]
  - NO THERAPEUTIC RESPONSE [None]
  - PURULENCE [None]
  - PYREXIA [None]
  - RASH [None]
  - THERAPEUTIC RESPONSE DECREASED [None]
  - TREATMENT NONCOMPLIANCE [None]
  - WEIGHT DECREASED [None]
